FAERS Safety Report 7545911-3 (Version None)
Quarter: 2011Q2

REPORT INFORMATION
  Report Type: 
  Country: None (occurrence: None)
  Receive Date: 20110607
  Receipt Date: 20110502
  Transmission Date: 20111010
  Serious: Yes (Life-Threatening)
  Sender: FDA-Public Use
  Company Number: FK201101009

PATIENT
  Age: 18 Year
  Sex: Female

DRUGS (3)
  1. MAGNESIUM SULFATE [Suspect]
     Indication: PRE-ECLAMPSIA
     Dosage: 4 GM, ONCE, INTRAVENOUS BOLUS
     Route: 040
  2. DIHYDRALAZINE [Concomitant]
  3. LABETALOL HCL [Concomitant]

REACTIONS (4)
  - FEELING ABNORMAL [None]
  - PULSELESS ELECTRICAL ACTIVITY [None]
  - MALAISE [None]
  - BRADYCARDIA [None]
